FAERS Safety Report 5496664-4 (Version None)
Quarter: 2007Q4

REPORT INFORMATION
  Report Type: 
  Country: None (occurrence: None)
  Receive Date: 20071025
  Receipt Date: 20070629
  Transmission Date: 20080405
  Serious: No
  Sender: FDA-Public Use
  Company Number: A0660993A

PATIENT
  Age: 72 Year
  Sex: Female

DRUGS (3)
  1. ADVAIR DISKUS 100/50 [Suspect]
     Indication: CHRONIC OBSTRUCTIVE PULMONARY DISEASE
     Route: 055
     Dates: start: 20061201
  2. FOSAMAX [Concomitant]
  3. SERTRALINE [Concomitant]

REACTIONS (4)
  - ASTHENOPIA [None]
  - CHEST PAIN [None]
  - OEDEMA PERIPHERAL [None]
  - VISION BLURRED [None]
